FAERS Safety Report 23896490 (Version 1)
Quarter: 2024Q2

REPORT INFORMATION
  Report Type: Spontaneous
  Country: US (occurrence: US)
  Receive Date: 20240524
  Receipt Date: 20240524
  Transmission Date: 20240715
  Serious: Yes (Other)
  Sender: FDA-Public Use
  Company Number: US-AMNEAL-2024-AMRX-01735

PATIENT
  Age: 65 Year
  Sex: Female
  Weight: 73.016 kg

DRUGS (3)
  1. BACLOFEN [Suspect]
     Active Substance: BACLOFEN
     Indication: Product used for unknown indication
     Dosage: 599.6 MCG
     Route: 037
  2. BUPIVACAINE [Concomitant]
     Active Substance: BUPIVACAINE
     Indication: Product used for unknown indication
     Dosage: 8.9 MG (CONCENTRATION: 30 MG/ML)
     Route: 065
  3. MORPHINE [Concomitant]
     Active Substance: MORPHINE
     Indication: Product used for unknown indication
     Dosage: 0.89994 MG (CONCENTRATION: 3.0 MG/ML)
     Route: 065

REACTIONS (3)
  - Medical device discomfort [Recovered/Resolved]
  - Device dislocation [Unknown]
  - Weight decreased [Unknown]

NARRATIVE: CASE EVENT DATE: 20240404
